FAERS Safety Report 7374856-7 (Version None)
Quarter: 2011Q1

REPORT INFORMATION
  Report Type: 
  Country: None (occurrence: None)
  Receive Date: 20110325
  Receipt Date: 20110317
  Transmission Date: 20110831
  Serious: Yes (Other)
  Sender: FDA-Public Use
  Company Number: GB-JNJFOC-20110303641

PATIENT
  Age: 55 Year
  Sex: Female
  Weight: 70.5 kg

DRUGS (5)
  1. AMITRIPTYLINE [Concomitant]
     Indication: PAIN
     Route: 065
  2. ACETAMINOPHEN AND CODEINE PHOSPHATE [Concomitant]
     Indication: PAIN
     Route: 065
  3. LISINOPRIL [Concomitant]
     Indication: BLOOD PRESSURE
     Route: 065
  4. DICLOFENAC [Concomitant]
     Indication: PAIN
     Route: 065
  5. TOPAMAX [Suspect]
     Indication: NEURALGIA
     Dosage: 25 MG AM AND 2 X 25 MG PM
     Route: 048

REACTIONS (1)
  - HEMIANOPIA [None]
